FAERS Safety Report 6339147-1 (Version None)
Quarter: 2009Q3

REPORT INFORMATION
  Report Type: 
  Country: None (occurrence: None)
  Receive Date: 20090903
  Receipt Date: 20090406
  Transmission Date: 20100115
  Serious: No
  Sender: FDA-Public Use
  Company Number: US-BAYER-200917895NA

PATIENT
  Age: 77 Year
  Sex: Female

DRUGS (1)
  1. ULTRAVIST 300 [Suspect]
     Indication: COMPUTERISED TOMOGRAM ABDOMEN
     Dosage: POWER INJECTOR AND WARMER, 2ML/SEC INTO UNSPECIFIED SITE
     Route: 042
     Dates: start: 20090306, end: 20090306

REACTIONS (1)
  - PRURITUS [None]
